FAERS Safety Report 5851227-3 (Version None)
Quarter: 2008Q3

REPORT INFORMATION
  Report Type: 
  Country: None (occurrence: None)
  Receive Date: 20080820
  Receipt Date: 20080815
  Transmission Date: 20090109
  Serious: Yes (Hospitalization)
  Sender: FDA-Public Use
  Company Number: DE-WYE-G01918308

PATIENT
  Sex: Female
  Weight: 90 kg

DRUGS (3)
  1. TREVILOR [Suspect]
     Dosage: OVERDOSE AMOUNT 1500 MG
     Route: 048
     Dates: start: 20080724, end: 20080724
  2. ALCOHOL [Suspect]
     Dosage: OVERDOSE AMOUNT 1.5 BOTTLES OF VODKA
     Route: 048
     Dates: start: 20080724, end: 20080724
  3. TETRAZEPAM [Suspect]
     Dosage: OVERDOSE AMOUNT 500 MG
     Route: 048
     Dates: start: 20080724, end: 20080724

REACTIONS (4)
  - APNOEA [None]
  - INTENTIONAL OVERDOSE [None]
  - SOMNOLENCE [None]
  - SUICIDE ATTEMPT [None]
